FAERS Safety Report 5388309-9 (Version None)
Quarter: 2007Q3

REPORT INFORMATION
  Report Type: 
  Country: None (occurrence: None)
  Receive Date: 20070716
  Receipt Date: 20070419
  Transmission Date: 20080115
  Serious: No
  Sender: FDA-Public Use
  Company Number: A0647767A

PATIENT
  Sex: Male

DRUGS (2)
  1. NICORETTE [Suspect]
  2. NICORETTE [Suspect]

REACTIONS (5)
  - COUGH [None]
  - INTENTIONAL DRUG MISUSE [None]
  - OVERDOSE [None]
  - RETCHING [None]
  - VOMITING [None]
